FAERS Safety Report 22744605 (Version 5)
Quarter: 2025Q1

REPORT INFORMATION
  Report Type: Spontaneous
  Country: US (occurrence: US)
  Receive Date: 20230724
  Receipt Date: 20250123
  Transmission Date: 20250409
  Serious: Yes (Other)
  Sender: CHATTEM
  Company Number: US-OPELLA-2023OHG000994

PATIENT
  Age: 56 Year

DRUGS (1)
  1. MENTHOL\ZINC OXIDE [Suspect]
     Active Substance: MENTHOL\ZINC OXIDE
     Indication: Product used for unknown indication
     Route: 065

REACTIONS (1)
  - Mesothelioma [Unknown]
